FAERS Safety Report 7356182-5 (Version None)
Quarter: 2011Q1

REPORT INFORMATION
  Report Type: 
  Country: None (occurrence: None)
  Receive Date: 20110316
  Receipt Date: 20110309
  Transmission Date: 20110831
  Serious: Yes (Other)
  Sender: FDA-Public Use
  Company Number: GB-PFIZER INC-2011052689

PATIENT
  Age: 62 Year
  Sex: Female
  Weight: 60 kg

DRUGS (9)
  1. NYSTATIN [Concomitant]
  2. LOSARTAN [Concomitant]
     Dosage: 25 MG, 2X/DAY
  3. FRUSEMIDE [Concomitant]
     Dosage: 40 MG, UNK
  4. OMEPRAZOLE [Concomitant]
     Dosage: 20 MG, UNK
  5. PREDNISOLONE [Concomitant]
     Dosage: 5 MG, UNK
  6. VORICONAZOLE [Suspect]
     Indication: FUNGAL INFECTION
     Dosage: 200 MG, 2X/DAY
     Route: 048
     Dates: start: 20101001, end: 20110101
  7. DOXAZOSIN [Concomitant]
     Dosage: 8 MG, UNK
  8. MOXONIDINE [Concomitant]
     Dosage: 200 UG, 3X/DAY
  9. PROGRAF [Concomitant]
     Dosage: 1 MG, 2X/DAY

REACTIONS (2)
  - ARTHRALGIA [None]
  - POLYARTHRITIS [None]
